FAERS Safety Report 21895082 (Version 4)
Quarter: 2023Q2

REPORT INFORMATION
  Report Type: Spontaneous
  Country: US (occurrence: US)
  Receive Date: 20230122
  Receipt Date: 20230615
  Transmission Date: 20230721
  Serious: Yes (Other)
  Sender: FDA-Public Use
  Company Number: US-BIOVITRUM-2023US01000

PATIENT
  Age: 65 Year
  Sex: Female

DRUGS (2)
  1. KINERET [Suspect]
     Active Substance: ANAKINRA
     Indication: Rheumatoid arthritis
     Dosage: 1 IN 1 DAY
     Route: 058
     Dates: start: 202204
  2. KINERET [Suspect]
     Active Substance: ANAKINRA
     Dosage: 100 MG DAILY
     Route: 058
     Dates: start: 20220421

REACTIONS (10)
  - Rheumatoid arthritis [Unknown]
  - Illness [Recovered/Resolved]
  - Blood iron decreased [Unknown]
  - Diarrhoea [Unknown]
  - Wheelchair user [Unknown]
  - Drug ineffective [Unknown]
  - Mobility decreased [Unknown]
  - Crying [Unknown]
  - Ligament sprain [Unknown]
  - Faeces discoloured [Unknown]
